FAERS Safety Report 6443312-2 (Version None)
Quarter: 2009Q4

REPORT INFORMATION
  Report Type: 
  Country: None (occurrence: None)
  Receive Date: 20091112
  Receipt Date: 20091102
  Transmission Date: 20100525
  Serious: Yes (Other)
  Sender: FDA-Public Use
  Company Number: ADR4725009

PATIENT
  Age: 76 Year
  Sex: Female

DRUGS (6)
  1. SIMVASTATIN [Suspect]
     Dosage: 20MG, ORAL
     Route: 048
     Dates: start: 20060605, end: 20060913
  2. ALLOPURINOL [Concomitant]
  3. AMLODIPINE [Concomitant]
  4. ASPIRIN [Concomitant]
  5. ATENOLOL [Concomitant]
  6. METFORMIN HCL [Concomitant]

REACTIONS (2)
  - DERMATITIS [None]
  - LICHENOID KERATOSIS [None]
